FAERS Safety Report 7991369-X (Version None)
Quarter: 2011Q4

REPORT INFORMATION
  Report Type: 
  Country: None (occurrence: None)
  Receive Date: 20111219
  Receipt Date: 20111212
  Transmission Date: 20120403
  Serious: Yes (Hospitalization, Other)
  Sender: FDA-Public Use
  Company Number: US-PFIZER INC-2011161072

PATIENT
  Sex: Female
  Weight: 103 kg

DRUGS (8)
  1. LYRICA [Suspect]
     Dosage: UNK
  2. PROCARDIA [Suspect]
  3. LYRICA [Suspect]
     Dosage: UNK
     Dates: start: 20100101
  4. PROTONIX [Suspect]
     Dosage: UNKNOWN
  5. LYRICA [Suspect]
     Dosage: 200 MG, UNK
  6. PAXIL [Concomitant]
     Indication: DEPRESSION
     Dosage: 10 MG, DAILY
  7. LYRICA [Suspect]
     Indication: FIBROMYALGIA
     Dosage: 150 MG, UNK
     Dates: start: 20100101
  8. VICODIN [Suspect]
     Dosage: UNK

REACTIONS (6)
  - SINUSITIS [None]
  - VISION BLURRED [None]
  - DYSPNOEA [None]
  - CONFUSIONAL STATE [None]
  - IMPAIRED DRIVING ABILITY [None]
  - VISUAL ACUITY REDUCED [None]
